FAERS Safety Report 9721518 (Version 1)
Quarter: 2013Q4

REPORT INFORMATION
  Report Type: Spontaneous
  Country: DE (occurrence: DE)
  Receive Date: 20131130
  Receipt Date: 20131130
  Transmission Date: 20140711
  Serious: Yes (Death, Other)
  Sender: FDA-Public Use
  Company Number: DE-009507513-1311DEU008203

PATIENT
  Sex: 0

DRUGS (52)
  1. SIMVASTATIN [Suspect]
     Dosage: UNK
  2. IBUPROFEN [Suspect]
     Dosage: UNK
  3. ACETAMINOPHEN (+) CODEINE PHOSPHATE [Suspect]
     Dosage: UNK
  4. ASPIRIN [Suspect]
     Dosage: UNK
  5. DICLOFENAC [Suspect]
     Dosage: UNK
  6. SULFASALAZINE [Suspect]
     Dosage: UNK
  7. EXENATIDE [Suspect]
     Dosage: UNK
  8. AMLODIPINE BESYLATE (+) OLMESARTAN MEDOXOMIL [Suspect]
     Dosage: UNK
  9. FENOFIBRATE [Suspect]
     Dosage: UNK
  10. INEGY [Suspect]
     Dosage: UNK
  11. CERTOSTAT [Suspect]
     Dosage: UNK
  12. CEFUROXIME [Suspect]
     Dosage: UNK
  13. KALETRA [Suspect]
     Dosage: UNK
  14. RALTEGRAVIR POTASSIUM [Suspect]
     Dosage: UNK
  15. MERCAPTOPURINE [Suspect]
     Dosage: UNK
  16. MYCOPHENOLIC ACID [Suspect]
     Dosage: UNK
  17. LEFLUNOMIDE [Suspect]
     Dosage: UNK
  18. TOCILIZUMAB [Suspect]
     Dosage: UNK
  19. AZATHIOPRINE [Suspect]
     Dosage: UNK
  20. PROPOFOL [Suspect]
     Dosage: UNK
  21. VALPROIC ACID [Suspect]
     Dosage: UNK
  22. OLANZAPINE [Suspect]
     Dosage: UNK
  23. OMEPRAZOLE [Suspect]
     Dosage: UNK
  24. PANTOPRAZOLE [Suspect]
     Dosage: UNK
  25. ESOMEPRAZOLE MAGNESIUM [Suspect]
     Dosage: UNK
  26. INSULIN [Suspect]
     Dosage: UNK
  27. METFORMIN [Suspect]
     Dosage: UNK
  28. MAGNESIUM (UNSPECIFIED) [Suspect]
     Dosage: UNK
  29. HYDROCHLOROTHIAZIDE [Suspect]
     Dosage: UNK
  30. TORSEMIDE [Suspect]
     Dosage: UNK
  31. ENALAPRIL MALEATE [Suspect]
     Dosage: UNK
  32. METOPROLOL [Suspect]
     Dosage: UNK
  33. LEKOVIT CA [Suspect]
     Dosage: UNK
  34. BISOPROLOL [Suspect]
     Dosage: UNK
  35. NEBIVOLOL [Suspect]
     Dosage: UNK
  36. AMLODIPINE [Suspect]
     Dosage: UNK
  37. RAMIPRIL [Suspect]
     Dosage: UNK
  38. SALUTEC [Suspect]
     Dosage: UNK
  39. ATORVASTATIN [Suspect]
     Dosage: UNK
  40. FENOFIBRATE [Suspect]
     Dosage: UNK
  41. EUGYNON [Suspect]
     Dosage: UNK
  42. LEVOTHYROXINE SODIUM [Suspect]
     Dosage: UNK
  43. ALLOPURINOL [Suspect]
     Dosage: UNK
  44. FUROSEMIDE [Suspect]
     Dosage: UNK
  45. DIPYRONE [Suspect]
     Dosage: UNK
  46. VALERIAN [Suspect]
     Dosage: UNK
  47. FORASEQ [Suspect]
     Dosage: UNK
  48. TIMOLOL [Suspect]
     Dosage: UNK
  49. BUDESONIDE [Suspect]
     Dosage: UNK
  50. LISINOPRIL [Suspect]
     Dosage: UNK
  51. MESALAMINE [Suspect]
  52. MESALAMINE [Suspect]

REACTIONS (1)
  - Pancreatitis [Fatal]
